FAERS Safety Report 4334369-3 (Version None)
Quarter: 2004Q1

REPORT INFORMATION
  Report Type: 
  Country: None (occurrence: None)
  Receive Date: 20040326
  Receipt Date: 20031209
  Transmission Date: 20041129
  Serious: No
  Sender: FDA-Public Use
  Company Number: US-JNJFOC-20030805334

PATIENT
  Age: 81 Year
  Sex: Female
  Weight: 46.2669 kg

DRUGS (12)
  1. REMINYL [Suspect]
     Indication: DEMENTIA ALZHEIMER'S TYPE
     Dosage: SEE IMAGE
     Route: 048
     Dates: start: 20021101, end: 20030701
  2. REMINYL [Suspect]
     Indication: DEMENTIA ALZHEIMER'S TYPE
     Dosage: SEE IMAGE
     Route: 048
     Dates: start: 20030701, end: 20030801
  3. EXELON [Suspect]
     Indication: MEMORY IMPAIRMENT
     Dates: start: 20030818
  4. PROZAC (FLUOXETINE HYDROCHLORIDE) TABLETS [Concomitant]
  5. RISPERDAL (RISPERIDONE) LIQUID [Concomitant]
  6. ZESTRIL [Concomitant]
  7. ATIVAN [Concomitant]
  8. CALCIUM (CALCIUM) CAPSULES [Concomitant]
  9. VITAMIN E (TOCOPHEROL) CAPSULES [Concomitant]
  10. VITAMIN E (TOCOPHEROL) CAPSULES [Concomitant]
  11. VITAMIN C (ASCORBIC ACID) TABLETS [Concomitant]
  12. MULTIVITAMIN (MULTIVITAMINS) TABLETS [Concomitant]

REACTIONS (3)
  - ASTHENIA [None]
  - DYSKINESIA [None]
  - PAIN IN EXTREMITY [None]
